FAERS Safety Report 10233466 (Version 1)
Quarter: 2014Q2

REPORT INFORMATION
  Report Type: Spontaneous
  Country: GB (occurrence: GB)
  Receive Date: 20140612
  Receipt Date: 20140612
  Transmission Date: 20141212
  Serious: Yes (Hospitalization, Disabling, Other)
  Sender: FDA-Public Use
  Company Number: GB-WATSON-2014-12020

PATIENT
  Age: 53 Year
  Sex: Female

DRUGS (2)
  1. OMEPRAZOLE [Suspect]
     Indication: NAUSEA
     Dosage: 40 MG, UNKNOWN; OMEPRAZOLE SWITCHED TO IV FROM ORAL AS NBM. OMEPRAZOLE USED FOR NAUSEA AND VOMITING.
     Route: 042
     Dates: start: 20140513
  2. CYCLIZINE [Suspect]
     Indication: NAUSEA
     Dosage: 50 MG, UNKNOWN; USED FOR NAUSEA AND VOMITING
     Route: 042

REACTIONS (1)
  - Convulsion [Recovered/Resolved]
